FAERS Safety Report 5105421-X (Version None)
Quarter: 2006Q3

REPORT INFORMATION
  Report Type: 
  Country: None (occurrence: None)
  Receive Date: 20060915
  Receipt Date: 20060911
  Transmission Date: 20061208
  Serious: Yes (Other)
  Sender: FDA-Public Use
  Company Number: PHNU2006DE03088

PATIENT
  Sex: Male

DRUGS (7)
  1. TEGRETOL [Suspect]
     Indication: PARAESTHESIA
     Dosage: 400 MG, TID
     Route: 048
  2. CARBAMAZEPINE [Concomitant]
  3. SIRDALUD [Concomitant]
  4. MAGNETRANS [Concomitant]
     Dosage: 1 DF, TID
  5. DETRUSITOL [Concomitant]
  6. KATADOLON [Concomitant]
  7. MINIRIN [Concomitant]

REACTIONS (4)
  - GAMMA-GLUTAMYLTRANSFERASE INCREASED [None]
  - LYMPHOCYTE PERCENTAGE INCREASED [None]
  - OSTEOPOROSIS [None]
  - RED BLOOD CELL COUNT INCREASED [None]
